FAERS Safety Report 25140289 (Version 1)
Quarter: 2025Q2

REPORT INFORMATION
  Report Type: Spontaneous
  Country: US (occurrence: None)
  Receive Date: 20250328
  Receipt Date: 20250328
  Transmission Date: 20250717
  Serious: No
  Sender: FDA-CTU
  Company Number: None

PATIENT
  Age: 74 Year
  Sex: Male

DRUGS (1)
  1. OPSUMIT [Suspect]
     Active Substance: MACITENTAN
     Indication: Pulmonary arterial hypertension
     Dosage: 10 MG DAILY ORAL ?
     Route: 048

REACTIONS (5)
  - Fluid retention [None]
  - Hypervolaemia [None]
  - Dyspnoea [None]
  - Oedema [None]
  - Pulmonary hypertension [None]

NARRATIVE: CASE EVENT DATE: 20250312
